FAERS Safety Report 6859524-X (Version None)
Quarter: 2010Q3

REPORT INFORMATION
  Report Type: 
  Country: None (occurrence: None)
  Receive Date: 20100719
  Receipt Date: 20080425
  Transmission Date: 20110219
  Serious: No
  Sender: FDA-Public Use
  Company Number: US-PFIZER INC-2008021157

PATIENT
  Sex: Female
  Weight: 62.1 kg

DRUGS (6)
  1. CHANTIX [Suspect]
     Indication: SMOKING CESSATION THERAPY
     Route: 048
     Dates: start: 20080219
  2. EFFEXOR [Concomitant]
  3. LAMICTAL [Concomitant]
  4. SYNTHROID [Concomitant]
  5. DEPAKOTE [Concomitant]
  6. LITHIUM CARBONATE [Concomitant]

REACTIONS (1)
  - NAUSEA [None]
